FAERS Safety Report 7458356-1 (Version None)
Quarter: 2011Q2

REPORT INFORMATION
  Report Type: 
  Country: None (occurrence: None)
  Receive Date: 20110504
  Receipt Date: 20110427
  Transmission Date: 20111010
  Serious: Yes (Death, Hospitalization)
  Sender: FDA-Public Use
  Company Number: A0801474A

PATIENT
  Sex: Female
  Weight: 59 kg

DRUGS (2)
  1. TYKERB [Suspect]
     Dosage: 1250MG PER DAY
     Route: 048
     Dates: start: 20090711, end: 20091120
  2. XELODA [Concomitant]
     Dosage: 650MG UNKNOWN
     Route: 065

REACTIONS (8)
  - BREAST CANCER [None]
  - NAUSEA [None]
  - RASH [None]
  - DEATH [None]
  - FEMUR FRACTURE [None]
  - MOBILITY DECREASED [None]
  - MUSCLE SPASMS [None]
  - CONSTIPATION [None]
